FAERS Safety Report 14763237 (Version 1)
Quarter: 2018Q2

REPORT INFORMATION
  Report Type: Spontaneous
  Country: JO (occurrence: JO)
  Receive Date: 20180416
  Receipt Date: 20180416
  Transmission Date: 20180711
  Serious: Yes (Death, Other)
  Sender: FDA-Public Use
  Company Number: PHHY2018JO060950

PATIENT
  Age: 42 Year
  Sex: Female

DRUGS (1)
  1. FILGRASTIM [Suspect]
     Active Substance: FILGRASTIM
     Indication: RESPIRATORY TRACT INFECTION FUNGAL
     Route: 065

REACTIONS (3)
  - Disseminated intravascular coagulation [Unknown]
  - Acute promyelocytic leukaemia [Unknown]
  - Brain stem haemorrhage [Fatal]
